FAERS Safety Report 9537844 (Version 3)
Quarter: 2015Q2

REPORT INFORMATION
  Report Type: Report from Study
  Country: FR (occurrence: FR)
  Receive Date: 20130919
  Receipt Date: 20150403
  Transmission Date: 20150821
  Serious: Yes (Hospitalization)
  Sender: FDA-Public Use
  Company Number: PHHY2013FR103558

PATIENT
  Age: 65 Year
  Sex: Male

DRUGS (2)
  1. CORTANCYL [Suspect]
     Active Substance: PREDNISONE
     Indication: PROPHYLAXIS AGAINST TRANSPLANT REJECTION
     Dosage: 7.5 MG, QD
     Route: 048
     Dates: start: 20111118
  2. NEORAL [Suspect]
     Active Substance: CYCLOSPORINE
     Indication: PROPHYLAXIS AGAINST TRANSPLANT REJECTION
     Dosage: 250 MG, QD
     Route: 048
     Dates: start: 20110719

REACTIONS (3)
  - Skin ulcer [Recovered/Resolved]
  - Staphylococcal infection [Recovered/Resolved]
  - Osteitis [Recovered/Resolved]

NARRATIVE: CASE EVENT DATE: 20130328
